FAERS Safety Report 8756048 (Version 3)
Quarter: 2012Q4

REPORT INFORMATION
  Report Type: Spontaneous
  Country: US (occurrence: None)
  Receive Date: 20120813
  Receipt Date: 20121010
  Transmission Date: 20130627
  Serious: Yes (Other)
  Sender: FDA-Public Use
  Company Number: TPA2012A03424

PATIENT
  Age: 59 Year
  Sex: Female

DRUGS (4)
  1. ACTOPLUS MET [Suspect]
     Indication: TYPE 2 DIABETES MELLITUS
     Dates: start: 2004, end: 2008
  2. METFORMIN (METFORMIN) [Concomitant]
  3. AVANDIA (ROSIGLITAZONE MALEATE) [Concomitant]
  4. JANUVIA (SITAGLIPTIN PHOSPHATE) [Concomitant]

REACTIONS (3)
  - Bladder cancer [None]
  - Renal failure [None]
  - Cardiac failure congestive [None]
